FAERS Safety Report 12242649 (Version 4)
Quarter: 2016Q2

REPORT INFORMATION
  Report Type: Spontaneous
  Country: US (occurrence: US)
  Receive Date: 20160406
  Receipt Date: 20160425
  Transmission Date: 20160815
  Serious: Yes (Other)
  Sender: FDA-Public Use
  Company Number: PHHY2016US018439

PATIENT
  Age: 51 Year
  Sex: Female

DRUGS (53)
  1. LIORESAL [Suspect]
     Active Substance: BACLOFEN
     Dosage: 1630.8 UG, QD
     Route: 037
     Dates: start: 20160121, end: 20160210
  2. HYDROCORTISONE. [Suspect]
     Active Substance: HYDROCORTISONE
     Indication: RASH
  3. AMITRIPTYLINE HYDROCHLORIDE. [Suspect]
     Active Substance: AMITRIPTYLINE HYDROCHLORIDE
     Dosage: 25 MG, QD, (AT BEDTIME)
     Route: 048
  4. PROCHLORPERAZINE. [Suspect]
     Active Substance: PROCHLORPERAZINE
     Indication: VOMITING
  5. LIDOCAINE. [Suspect]
     Active Substance: LIDOCAINE
     Indication: PRODUCT USED FOR UNKNOWN INDICATION
     Dosage: 1 DF, QD (5% 5IN X 6IN PATCH, APPLY 3 PATCHES TO AFFECTED AREA EVERY DAY TO LOWER AND UPPER BACK FO)
     Route: 062
  6. OXYCODONE [Suspect]
     Active Substance: OXYCODONE
     Indication: PAIN
     Dosage: 1 DF, TID (5 MG/APAP 235 MG (PERCOCET)
     Route: 048
  7. TOLTERODINE TARTRATE. [Suspect]
     Active Substance: TOLTERODINE TARTRATE
     Indication: BLADDER DISORDER
     Dosage: 4 MG, QD
     Route: 065
  8. VITAMIN D3 [Suspect]
     Active Substance: CHOLECALCIFEROL
     Indication: NUTRITIONAL SUPPLEMENTATION
     Dosage: 1000 U, QD
     Route: 048
  9. SINUS RINSE [Suspect]
     Active Substance: SODIUM BICARBONATE\SODIUM CHLORIDE
     Indication: PRODUCT USED FOR UNKNOWN INDICATION
     Dosage: UNK UNK, QID ( NEILTMED PKT)
     Route: 065
  10. SODIUM FLUORIDE. [Suspect]
     Active Substance: SODIUM FLUORIDE
     Indication: PRODUCT USED FOR UNKNOWN INDICATION
     Route: 004
  11. LIORESAL [Suspect]
     Active Substance: BACLOFEN
     Dosage: 1752.5 UG, QD
     Route: 037
     Dates: start: 20151221, end: 20160121
  12. ALBUTEROL. [Suspect]
     Active Substance: ALBUTEROL
     Indication: DYSPNOEA
     Dosage: 90 UG, QID, (CFC-F) 200D, 1 PUFF BY MOUTH FOUR TIMES A DAY AS NEEDED
     Route: 055
  13. MULTI VITAMIN [Suspect]
     Active Substance: VITAMINS
     Indication: PRODUCT USED FOR UNKNOWN INDICATION
     Dosage: UNK UNK, QD
     Route: 065
  14. POLYVINYL ALCOHOL [Suspect]
     Active Substance: POLYVINYL ALCOHOL
     Indication: DRY EYE
     Dosage: 1 GTT, BID (ONE DROP INTO EACH EYE FOR DRY EYES)
     Route: 065
  15. TERBINAFINE. [Suspect]
     Active Substance: TERBINAFINE
     Indication: FUNGAL INFECTION
     Dosage: UNK UNK, BID( 1% CREAM; APPLY TO AFFECTED AREA)
     Route: 061
  16. ONDANSETRON HYDROCHLORIDE. [Suspect]
     Active Substance: ONDANSETRON HYDROCHLORIDE
     Indication: NAUSEA
     Dosage: 4 MG, TID
     Route: 048
  17. OMEPRAZOLE. [Suspect]
     Active Substance: OMEPRAZOLE
     Indication: PRODUCT USED FOR UNKNOWN INDICATION
     Dosage: 2 DF, BID
     Route: 048
  18. TEMAZEPAM. [Suspect]
     Active Substance: TEMAZEPAM
     Indication: PRODUCT USED FOR UNKNOWN INDICATION
     Dosage: 15 MG, QD (AT BEDTIME)
     Route: 048
  19. FUROSEMIDE. [Suspect]
     Active Substance: FUROSEMIDE
     Indication: PRODUCT USED FOR UNKNOWN INDICATION
     Dosage: 2 DF, BID (EVERY MORNING)
     Route: 048
  20. PROCHLORPERAZINE. [Suspect]
     Active Substance: PROCHLORPERAZINE
     Indication: NAUSEA
     Dosage: 5 MG, QID AS NEEDED
     Route: 048
  21. CETIRIZINE [Suspect]
     Active Substance: CETIRIZINE HYDROCHLORIDE
     Indication: PRODUCT USED FOR UNKNOWN INDICATION
     Dosage: 10 MG, QD
     Route: 048
  22. SUMATRIPTAN SUCCINATE. [Suspect]
     Active Substance: SUMATRIPTAN SUCCINATE
     Indication: MIGRAINE
     Dosage: UNK
     Route: 059
  23. RIFAXIMIN [Suspect]
     Active Substance: RIFAXIMIN
     Indication: ENTERITIS INFECTIOUS
     Dosage: 200 MG, BID
     Route: 048
  24. LIORESAL [Suspect]
     Active Substance: BACLOFEN
     Dosage: 1630.8 UG, QD
     Route: 037
  25. MUPIROCIN. [Suspect]
     Active Substance: MUPIROCIN
     Indication: SKIN INFECTION
     Dosage: 22 G, BID
     Route: 061
  26. DIPHENHYDRAMINE HYDROCHLORIDE. [Suspect]
     Active Substance: DIPHENHYDRAMINE HYDROCHLORIDE
     Indication: HYPERSENSITIVITY
     Dosage: 1 DF, QD (ONCE TSP BY MOUTH TWICE DAILY, AS NEEDED )
     Route: 048
  27. DIPHENHYDRAMINE HYDROCHLORIDE. [Suspect]
     Active Substance: DIPHENHYDRAMINE HYDROCHLORIDE
     Indication: INSOMNIA
  28. ARMODAFINIL. [Suspect]
     Active Substance: ARMODAFINIL
     Indication: SLEEP APNOEA SYNDROME
     Dosage: 250 MG, QD
     Route: 048
  29. VITAMIN B COMPLEX WITH C [Suspect]
     Active Substance: ASCORBIC ACID\CALCIUM PANTOTHENATE\CYANOCOBALAMIN\NIACINAMIDE\PYRIDOXINE HYDROCHLORIDE\RIBOFLAVIN\THIAMINE MONONITRATE
     Indication: NUTRITIONAL SUPPLEMENTATION
     Dosage: UNK UNK, QD
     Route: 048
  30. ARIPIPRAZOLE. [Suspect]
     Active Substance: ARIPIPRAZOLE
     Indication: PRODUCT USED FOR UNKNOWN INDICATION
     Dosage: 0.5 DF, QD (AT BEDTIME)
     Route: 048
  31. RANITIDINE HYDROCHLORIDE. [Suspect]
     Active Substance: RANITIDINE HYDROCHLORIDE
     Indication: PRODUCT USED FOR UNKNOWN INDICATION
     Dosage: 150 MG, BID
     Route: 048
  32. CEFUROXIME AXETIL. [Suspect]
     Active Substance: CEFUROXIME AXETIL
     Indication: PRODUCT USED FOR UNKNOWN INDICATION
     Dosage: 500 MG, BID
     Route: 065
  33. TRIAMCINOLONE [Suspect]
     Active Substance: TRIAMCINOLONE
     Indication: PRODUCT USED FOR UNKNOWN INDICATION
     Dosage: UNK UNK, BID (APPLY 2X/DAY TO NECK)
     Route: 061
  34. MOMETASONE FUROATE. [Suspect]
     Active Substance: MOMETASONE FUROATE
     Indication: RHINITIS ALLERGIC
     Dosage: 50 UG, QD ( 120 D NASAL SUP SPRAY) TWO SPRAYS IN EACH NOSTRIL
     Route: 045
  35. DOCUSATE SODIUM. [Suspect]
     Active Substance: DOCUSATE SODIUM
     Indication: PRODUCT USED FOR UNKNOWN INDICATION
     Dosage: 50 MG, TID
     Route: 048
  36. MINERAL OIL. [Suspect]
     Active Substance: MINERAL OIL
     Indication: PRODUCT USED FOR UNKNOWN INDICATION
     Dosage: UNK UNK, BID
     Route: 054
  37. SODIUM CHLORIDE. [Suspect]
     Active Substance: SODIUM CHLORIDE
     Indication: PRODUCT USED FOR UNKNOWN INDICATION
     Dosage: 2 DF, QID ( 2 SPRAYS EACH NOSTRIL)
     Route: 045
  38. ONDANSETRON HYDROCHLORIDE. [Suspect]
     Active Substance: ONDANSETRON HYDROCHLORIDE
     Indication: VOMITING
  39. LIORESAL [Suspect]
     Active Substance: BACLOFEN
     Indication: MUSCLE SPASTICITY
     Dosage: 1500 UG, QD
     Route: 037
  40. SPIRONOLACTONE. [Suspect]
     Active Substance: SPIRONOLACTONE
     Indication: PRODUCT USED FOR UNKNOWN INDICATION
     Dosage: 25 MG, QD
     Route: 048
  41. DIAZEPAM. [Suspect]
     Active Substance: DIAZEPAM
     Indication: PRODUCT USED FOR UNKNOWN INDICATION
     Dosage: 10 MG, QID
     Route: 048
  42. IPRATROPIUM [Suspect]
     Active Substance: IPRATROPIUM
     Indication: PRODUCT USED FOR UNKNOWN INDICATION
     Dosage: 0.03% (ONE SPRAY IN EACH NOSTRIL), BID
     Route: 045
  43. AZELASTINE [Suspect]
     Active Substance: AZELASTINE
     Indication: HYPERSENSITIVITY
     Dosage: 137 UG, QD (200 D NASAL INHALATION SPRAY; 2 SPRAYS IN EACH NOSTRIL TWICE A DAY AS DIRECTED )
     Route: 045
  44. DULOXETINE HCL [Suspect]
     Active Substance: DULOXETINE HYDROCHLORIDE
     Indication: PAIN
     Dosage: 30 MG, BID
     Route: 048
  45. DULOXETINE HCL [Suspect]
     Active Substance: DULOXETINE HYDROCHLORIDE
     Indication: AFFECTIVE DISORDER
  46. METHENAMINE HIPPURATE. [Suspect]
     Active Substance: METHENAMINE HIPPURATE
     Indication: PRODUCT USED FOR UNKNOWN INDICATION
     Dosage: 1 G, BID
     Route: 048
  47. DICLOFENAC [Suspect]
     Active Substance: DICLOFENAC
     Indication: PAIN
     Dosage: 1 %, TID
     Route: 061
  48. HYDROCORTISONE. [Suspect]
     Active Substance: HYDROCORTISONE
     Indication: INFLAMMATION
     Dosage: UNK UNK, BID (APPLY SPARINGLY TO AFFECTED AREA)
     Route: 061
  49. DOCUSATE SODIUM. [Suspect]
     Active Substance: DOCUSATE SODIUM
     Dosage: 8.6 MG, TID
     Route: 048
  50. PHOSPHATES ENEMA [Suspect]
     Active Substance: SODIUM PHOSPHATE, DIBASIC\SODIUM PHOSPHATE, MONOBASIC
     Indication: PRODUCT USED FOR UNKNOWN INDICATION
     Dosage: UNK UNK, QD
     Route: 054
  51. QUETIAPINE. [Suspect]
     Active Substance: QUETIAPINE
     Indication: PRODUCT USED FOR UNKNOWN INDICATION
     Dosage: 50 MG, BID
     Route: 048
  52. ASCORBIC ACID. [Suspect]
     Active Substance: ASCORBIC ACID
     Indication: NUTRITIONAL SUPPLEMENTATION
     Dosage: 1000 MG, QID
     Route: 048
  53. BIOTENE NOS [Suspect]
     Active Substance: CETYLPYRIDINIUM CHLORIDE OR SODIUM FLUORIDE OR SODIUM MONOFLUOROPHOSPHATE OR GLUCOSE OXIDASE\LACTOFERRIN\LACTOPEROXIDASE BOVINE\LYSOZYME
     Indication: PRODUCT USED FOR UNKNOWN INDICATION
     Dosage: UNK, BID
     Route: 048

REACTIONS (15)
  - Progressive multiple sclerosis [Unknown]
  - Sleep apnoea syndrome [Unknown]
  - Hypoxia [Unknown]
  - Adverse drug reaction [Unknown]
  - Muscle spasms [Unknown]
  - Somnolence [Unknown]
  - Pain [Unknown]
  - Muscle spasticity [Unknown]
  - Hallucination, visual [Unknown]
  - Hypoventilation [Unknown]
  - Hypertonia [Unknown]
  - Condition aggravated [Unknown]
  - Respiratory acidosis [Unknown]
  - Dysarthria [Unknown]
  - Confusional state [Unknown]

NARRATIVE: CASE EVENT DATE: 20160120
